FAERS Safety Report 6600642-9 (Version None)
Quarter: 2010Q1

REPORT INFORMATION
  Report Type: 
  Country: None (occurrence: None)
  Receive Date: 20100224
  Receipt Date: 20100216
  Transmission Date: 20100710
  Serious: Yes (Hospitalization)
  Sender: FDA-Public Use
  Company Number: FR-AMGEN-US394500

PATIENT
  Sex: Female

DRUGS (1)
  1. ENBREL [Suspect]
     Indication: ANKYLOSING SPONDYLITIS
     Route: 058
     Dates: start: 20090626

REACTIONS (7)
  - GASTRODUODENAL ULCER [None]
  - MIGRAINE [None]
  - NAUSEA [None]
  - NECK PAIN [None]
  - TENSION HEADACHE [None]
  - TINNITUS [None]
  - VISION BLURRED [None]
